FAERS Safety Report 12802869 (Version 1)
Quarter: 2016Q4

REPORT INFORMATION
  Report Type: Spontaneous
  Country: IT (occurrence: IT)
  Receive Date: 20161003
  Receipt Date: 20161003
  Transmission Date: 20170207
  Serious: Yes (Death)
  Sender: FDA-Public Use
  Company Number: IT-BAYER-2016-190235

PATIENT
  Age: 91 Year
  Sex: Female
  Weight: 70 kg

DRUGS (5)
  1. CARDIOASPIRIN [Suspect]
     Active Substance: ASPIRIN
     Indication: PROPHYLAXIS
     Dosage: 100 MG, QD
     Route: 048
     Dates: start: 20150101, end: 20160512
  2. LANTUS [Concomitant]
     Active Substance: INSULIN GLARGINE
     Dosage: 14 IU, QD
     Route: 058
  3. ARICEPT [Concomitant]
     Active Substance: DONEPEZIL HYDROCHLORIDE
     Dosage: 1 DF, QD
     Route: 048
  4. NOVORAPID [Concomitant]
     Active Substance: INSULIN ASPART
     Dosage: 32 IU, QD
     Route: 058
  5. PRASTEROL [Concomitant]
     Dosage: 1 DF, QD
     Route: 048

REACTIONS (2)
  - Cerebral haemorrhage [Fatal]
  - Hemiparesis [Fatal]

NARRATIVE: CASE EVENT DATE: 20160512
